FAERS Safety Report 18562175 (Version 1)
Quarter: 2020Q4

REPORT INFORMATION
  Report Type: Spontaneous
  Country: US (occurrence: US)
  Receive Date: 20201130
  Receipt Date: 20201130
  Transmission Date: 20210114
  Serious: Yes (Hospitalization, Other)
  Sender: FDA-Public Use
  Company Number: US-BEH-2020125338

PATIENT

DRUGS (1)
  1. HIZENTRA [Suspect]
     Active Substance: HUMAN IMMUNOGLOBULIN G
     Dosage: UNK, QMT 5 TREATMENTS PER WEEK ONCE A MONTH
     Route: 042

REACTIONS (8)
  - Nausea [Unknown]
  - Vomiting [Unknown]
  - Chills [Unknown]
  - Obstructive airways disorder [Unknown]
  - Malignant hypertension [Unknown]
  - Phlebitis [Unknown]
  - Angioedema [Unknown]
  - Incorrect route of product administration [Unknown]
